FAERS Safety Report 4777456-8 (Version None)
Quarter: 2005Q3

REPORT INFORMATION
  Report Type: 
  Country: None (occurrence: None)
  Receive Date: 20050915
  Receipt Date: 20050902
  Transmission Date: 20060218
  Serious: Yes (Death, Hospitalization, Other)
  Sender: FDA-Public Use
  Company Number: 217474

PATIENT
  Age: 55 Year
  Sex: Male

DRUGS (3)
  1. RAPTIVA [Suspect]
     Indication: PSORIASIS
     Dosage: 1.3 ML, 1/WEEK
     Dates: start: 20021101
  2. LISINOPRIL [Concomitant]
  3. HCTZ (HYDROCHLOROTHIAZIDE) [Concomitant]

REACTIONS (2)
  - B-CELL LYMPHOMA [None]
  - TUMOUR LYSIS SYNDROME [None]
